FAERS Safety Report 6883735-0 (Version None)
Quarter: 2010Q3

REPORT INFORMATION
  Report Type: 
  Country: None (occurrence: None)
  Receive Date: 20100729
  Receipt Date: 20100720
  Transmission Date: 20110219
  Serious: Yes (Death)
  Sender: FDA-Public Use
  Company Number: A0872759A

PATIENT
  Sex: Female

DRUGS (1)
  1. AVANDIA [Suspect]
     Indication: PRODUCT USED FOR UNKNOWN INDICATION
     Route: 048
     Dates: start: 20020429

REACTIONS (6)
  - ABDOMINAL PAIN UPPER [None]
  - ADVERSE DRUG REACTION [None]
  - CHEST PAIN [None]
  - DEATH [None]
  - LOSS OF CONSCIOUSNESS [None]
  - VOMITING [None]
